FAERS Safety Report 7420911-2 (Version None)
Quarter: 2011Q2

REPORT INFORMATION
  Report Type: 
  Country: None (occurrence: None)
  Receive Date: 20110418
  Receipt Date: 20110303
  Transmission Date: 20111010
  Serious: Yes (Other)
  Sender: FDA-Public Use
  Company Number: B0704755A

PATIENT
  Sex: Male
  Weight: 80 kg

DRUGS (4)
  1. LOXEN [Concomitant]
     Route: 065
  2. PREVISCAN [Concomitant]
     Indication: DEEP VEIN THROMBOSIS
     Dosage: 1TAB PER DAY
     Route: 048
     Dates: start: 20110118, end: 20110118
  3. ARIXTRA [Suspect]
     Indication: DEEP VEIN THROMBOSIS
     Dosage: 7.5MG PER DAY
     Route: 058
     Dates: start: 20110117, end: 20110124
  4. PRAVASTATIN [Concomitant]
     Route: 065

REACTIONS (2)
  - PAIN [None]
  - MUSCLE HAEMORRHAGE [None]
